FAERS Safety Report 7751066-2 (Version None)
Quarter: 2011Q3

REPORT INFORMATION
  Report Type: 
  Country: None (occurrence: None)
  Receive Date: 20110914
  Receipt Date: 20110908
  Transmission Date: 20111222
  Serious: Yes (Hospitalization)
  Sender: FDA-Public Use
  Company Number: JP-EISAI INC-E2090-01750-CLI-JP

PATIENT
  Sex: Female

DRUGS (17)
  1. LAXOBERON [Concomitant]
  2. LEPRINTON [Concomitant]
  3. COMTAN [Concomitant]
  4. MAGNESIUM SULFATE [Concomitant]
  5. KENEI G [Concomitant]
  6. AMOBAN [Concomitant]
  7. CARBIDOPA AND LEVODOPA [Concomitant]
  8. DOPS [Concomitant]
  9. PURSENNID [Concomitant]
  10. YODEL-S [Concomitant]
  11. ZONISAMIDE [Suspect]
     Indication: PARKINSON'S DISEASE
     Route: 048
     Dates: start: 20100630, end: 20100823
  12. NITRAZEPAM [Concomitant]
  13. COREMINAL [Concomitant]
  14. NITRAZEPAM [Concomitant]
  15. DEPAS [Concomitant]
  16. BUP-4 [Concomitant]
  17. SEROQUEL [Concomitant]

REACTIONS (1)
  - NEUROLEPTIC MALIGNANT SYNDROME [None]
